FAERS Safety Report 24021426 (Version 2)
Quarter: 2024Q3

REPORT INFORMATION
  Report Type: Report from Study
  Country: ZA (occurrence: ZA)
  Receive Date: 20240627
  Receipt Date: 20240710
  Transmission Date: 20241016
  Serious: No
  Sender: ROCHE
  Company Number: ZA-ROCHE-3544958

PATIENT
  Age: 62 Year
  Sex: Female

DRUGS (1)
  1. VABYSMO [Suspect]
     Active Substance: FARICIMAB\FARICIMAB-SVOA
     Indication: Neovascular age-related macular degeneration
     Dosage: RIGHT EYE:1ST INJECTION GIVEN ON 03/APR/2024?LEFT EYE: 1ST INJECTION GIVEN ON 06/MAR/2024?FOR FOUR D
     Route: 065
     Dates: start: 20240306

REACTIONS (2)
  - Off label use [Unknown]
  - No adverse event [Unknown]
